FAERS Safety Report 9583476 (Version 1)
Quarter: 2013Q4

REPORT INFORMATION
  Report Type: Spontaneous
  Country: US (occurrence: US)
  Receive Date: 20131002
  Receipt Date: 20131002
  Transmission Date: 20140711
  Serious: No
  Sender: FDA-Public Use
  Company Number: US-AMGEN-USASP2013047299

PATIENT
  Age: 54 Year
  Sex: Female
  Weight: 67.12 kg

DRUGS (8)
  1. ENBREL [Suspect]
     Indication: PRODUCT USED FOR UNKNOWN INDICATION
     Dosage: 50 MG, QWK
     Route: 058
  2. METHOTREXATE [Concomitant]
     Dosage: 1 G, UNK
  3. PREDNISONE [Concomitant]
     Dosage: 20 MG, UNK
  4. PREVACID NAPRAPAC [Concomitant]
     Dosage: 375 MG, UNK
  5. MOBIC [Concomitant]
     Dosage: 15 MG, UNK
  6. FOLIC ACID [Concomitant]
     Dosage: UNK
  7. VITAMIN D                          /00107901/ [Concomitant]
     Dosage: 50000 UNIT, UNK
  8. JINTELI [Concomitant]
     Dosage: 1MG-5MCG, UNK

REACTIONS (1)
  - Drug ineffective [Unknown]
